FAERS Safety Report 7573243-6 (Version None)
Quarter: 2011Q2

REPORT INFORMATION
  Report Type: 
  Country: None (occurrence: None)
  Receive Date: 20110620
  Receipt Date: 20110613
  Transmission Date: 20111010
  Serious: Yes (Other)
  Sender: FDA-Public Use
  Company Number: GB-ACCORD-008027

PATIENT
  Age: 50 Year
  Sex: Female

DRUGS (7)
  1. VENTOLIN(VENTOLIN) [Concomitant]
  2. BENDROFLUMETHIAZIDE(BENDROFLUMETHIAZIDE) [Concomitant]
  3. SIMVASTATIN [Suspect]
     Indication: DIABETES MELLITUS
     Dosage: 40.00-MG-1.00 TIMES PER-1.0DAYS
     Dates: start: 20101008, end: 20101104
  4. RAMIPRIL [Concomitant]
  5. SERETIDE(SERETIDE) [Concomitant]
  6. METFORMIN HCL [Concomitant]
  7. AMLODIPINE [Concomitant]

REACTIONS (1)
  - VISUAL ACUITY REDUCED [None]
